FAERS Safety Report 25092565 (Version 1)
Quarter: 2025Q1

REPORT INFORMATION
  Report Type: Spontaneous
  Country: DE (occurrence: DE)
  Receive Date: 20250319
  Receipt Date: 20250319
  Transmission Date: 20250409
  Serious: Yes (Hospitalization, Other)
  Sender: UCB
  Company Number: DE-UCBSA-2025014926

PATIENT

DRUGS (5)
  1. BRIVIACT [Suspect]
     Active Substance: BRIVARACETAM
     Indication: Lennox-Gastaut syndrome
     Dosage: 200 MILLIGRAM, ONCE DAILY (QD)
     Dates: start: 2017
  2. BRIVIACT [Suspect]
     Active Substance: BRIVARACETAM
     Indication: Off label use
  3. POTASSIUM BROMIDE [Concomitant]
     Active Substance: POTASSIUM BROMIDE
     Indication: Product used for unknown indication
  4. VALPROATE [Concomitant]
     Active Substance: VALPROIC ACID
     Indication: Product used for unknown indication
  5. FENFLURAMINE HYDROCHLORIDE [Concomitant]
     Active Substance: FENFLURAMINE HYDROCHLORIDE
     Indication: Lennox-Gastaut syndrome
     Dosage: 6 MILLILITER, 2X/DAY (BID)

REACTIONS (3)
  - Tonic convulsion [Unknown]
  - Myoclonic epilepsy [Unknown]
  - Off label use [Unknown]
